FAERS Safety Report 8382521-2 (Version None)
Quarter: 2012Q2

REPORT INFORMATION
  Report Type: 
  Country: None (occurrence: None)
  Receive Date: 20120524
  Receipt Date: 20120522
  Transmission Date: 20120825
  Serious: Yes (Other)
  Sender: FDA-Public Use
  Company Number: PHHY2010CA64373

PATIENT
  Sex: Female
  Weight: 77.2 kg

DRUGS (15)
  1. MIACALCIN [Concomitant]
     Dosage: 200 IU, SAILY
  2. EMTEC-30 [Concomitant]
     Dosage: 1 DF, PRN
  3. CALCIUM CARBONATE [Concomitant]
     Dosage: 1000 MG, UNK
     Route: 048
     Dates: start: 20090824
  4. AMITRIPTYLINE HCL [Concomitant]
     Dosage: 10 MG, UNK
  5. ALDACTAZIDE [Concomitant]
     Dosage: 1 DF, UNK
  6. RITALIN [Concomitant]
     Dosage: 20 MG, UNK
  7. ZOLEDRONOC ACID [Suspect]
     Indication: OSTEOPOROSIS
     Dosage: 5 MG/YEAR
     Route: 042
     Dates: start: 20091009
  8. DIDROCAL [Concomitant]
     Dosage: 400 MG, DAILY
     Dates: start: 20020101, end: 20040726
  9. FORTEO [Concomitant]
     Dosage: 20 MG,DAILY
  10. VITAMIN D [Concomitant]
     Dosage: 200 IU, UNK
     Route: 048
     Dates: start: 20090829
  11. CRESTOR [Concomitant]
     Dosage: 5 MG, QD
  12. DICLOFENAC SODIUM [Concomitant]
     Dosage: 500 MG, BID
  13. ZOLEDRONOC ACID [Suspect]
     Dosage: 5 MG/YEAR
     Route: 042
     Dates: start: 20110919
  14. GABAPENTIN [Concomitant]
     Dosage: 300 MG, BID
  15. EVISTA [Concomitant]
     Dosage: 670 MG, DAILY

REACTIONS (1)
  - TOOTH DISORDER [None]
